FAERS Safety Report 12665436 (Version 1)
Quarter: 2016Q3

REPORT INFORMATION
  Report Type: Spontaneous
  Country: RO (occurrence: RO)
  Receive Date: 20160818
  Receipt Date: 20160818
  Transmission Date: 20161109
  Serious: Yes (Death, Other)
  Sender: FDA-Public Use
  Company Number: RO-GLAXOSMITHKLINE-RO2016GSK118098

PATIENT
  Age: 1 Year
  Sex: Female

DRUGS (7)
  1. IBALGIN BABY [Suspect]
     Active Substance: IBUPROFEN
     Indication: PRODUCT USED FOR UNKNOWN INDICATION
     Dosage: 100 MG/ML, TID
     Dates: start: 20160807
  2. NUROFEN [Suspect]
     Active Substance: IBUPROFEN
     Indication: PHARYNGOTONSILLITIS
     Dosage: 5 ML, TID
     Route: 048
     Dates: start: 20160805, end: 20160806
  3. DICLOFENAC DIETHYLAMINE [Suspect]
     Active Substance: DICLOFENAC DIETHYLAMINE
     Indication: PYREXIA
  4. PANADOL BABY [Suspect]
     Active Substance: ACETAMINOPHEN
     Indication: PHARYNGOTONSILLITIS
     Dosage: 5 ML, TID
     Route: 048
     Dates: start: 20160805, end: 20160806
  5. NOVOCALMIN [Suspect]
     Active Substance: METAMIZOLE
     Indication: PYREXIA
  6. ZINNAT [Suspect]
     Active Substance: CEFUROXIME AXETIL
     Indication: TONSILLITIS
     Dosage: 75 MG/ML, BID
     Route: 048
     Dates: start: 20160807
  7. TANTUM VERDE (BENZYDAMINE HYDROCHLORIDE) [Suspect]
     Active Substance: BENZYDAMINE HYDROCHLORIDE
     Indication: PRODUCT USED FOR UNKNOWN INDICATION

REACTIONS (6)
  - Condition aggravated [Unknown]
  - Death [Fatal]
  - Drug ineffective [Unknown]
  - Pyrexia [Unknown]
  - Tonsillitis [Unknown]
  - Shock [Unknown]

NARRATIVE: CASE EVENT DATE: 20160804
